FAERS Safety Report 7355898-4 (Version None)
Quarter: 2011Q1

REPORT INFORMATION
  Report Type: 
  Country: None (occurrence: None)
  Receive Date: 20110316
  Receipt Date: 20101101
  Transmission Date: 20110831
  Serious: No
  Sender: FDA-Public Use
  Company Number: US-BAYER-201023431BCC

PATIENT
  Sex: Female
  Weight: 60.909 kg

DRUGS (2)
  1. LOVASTATIN [Concomitant]
  2. ALEVE [Suspect]
     Indication: PAIN IN EXTREMITY
     Dosage: COUNT SIZE 250S CLUB
     Route: 048

REACTIONS (1)
  - NO ADVERSE EVENT [None]
